FAERS Safety Report 5655263-1 (Version None)
Quarter: 2008Q1

REPORT INFORMATION
  Report Type: 
  Country: None (occurrence: None)
  Receive Date: 20080307
  Receipt Date: 20080304
  Transmission Date: 20080703
  Serious: Yes (Other)
  Sender: FDA-Public Use
  Company Number: B0507101A

PATIENT
  Age: 10 Year
  Sex: Male
  Weight: 30.5 kg

DRUGS (6)
  1. RELENZA [Suspect]
     Indication: INFLUENZA
     Dosage: 10MG PER DAY
     Route: 055
     Dates: start: 20080125, end: 20080126
  2. COCARL [Concomitant]
     Indication: INFLUENZA
     Dosage: 300MG PER DAY
     Route: 048
     Dates: start: 20080125
  3. ASTOMIN [Concomitant]
     Indication: INFLUENZA
     Dosage: 10MG THREE TIMES PER DAY
     Route: 048
     Dates: start: 20080125, end: 20080130
  4. MUCODYNE [Concomitant]
     Indication: INFLUENZA
     Dosage: 250MG THREE TIMES PER DAY
     Route: 048
     Dates: start: 20080125, end: 20080130
  5. POLARAMINE [Concomitant]
     Indication: INFLUENZA
     Dosage: 2MG TWICE PER DAY
     Route: 048
     Dates: start: 20080125, end: 20080130
  6. KLARICID [Concomitant]
     Indication: INFLUENZA
     Dosage: 100MG THREE TIMES PER DAY
     Route: 048
     Dates: start: 20080125, end: 20080130

REACTIONS (3)
  - ABNORMAL BEHAVIOUR [None]
  - CRYING [None]
  - DELIRIUM [None]
